FAERS Safety Report 9388954 (Version 1)
Quarter: 2013Q3

REPORT INFORMATION
  Report Type: Spontaneous
  Country: JP (occurrence: JP)
  Receive Date: 20130708
  Receipt Date: 20130708
  Transmission Date: 20140515
  Serious: Yes (Other)
  Sender: FDA-Public Use
  Company Number: JP-MYLANLABS-2013S1014541

PATIENT
  Age: 35 Year
  Sex: Female

DRUGS (4)
  1. CICLOSPORIN [Suspect]
     Indication: LICHEN PLANUS
     Dosage: 100 MG/DAY (2 MG/KG/DAY)
     Route: 065
  2. CICLOSPORIN [Suspect]
     Indication: LICHEN PLANUS
     Dates: start: 201111
  3. PREDNISOLONE [Suspect]
     Indication: LICHEN PLANUS
     Dosage: 20 MG/DAY (0.4 MG/KG/DAY)
     Route: 048
  4. PREDNISOLONE [Suspect]
     Indication: LICHEN PLANUS
     Dates: start: 201301

REACTIONS (3)
  - Insomnia [Unknown]
  - Fracture [Unknown]
  - Influenza [Recovered/Resolved]
